FAERS Safety Report 18539930 (Version 1)
Quarter: 2020Q4

REPORT INFORMATION
  Report Type: Spontaneous
  Country: US (occurrence: US)
  Receive Date: 20201124
  Receipt Date: 20201124
  Transmission Date: 20210114
  Serious: Yes (Life-Threatening)
  Sender: FDA-Public Use
  Company Number: None

PATIENT
  Age: 50 Year
  Sex: Female
  Weight: 71.7 kg

DRUGS (9)
  1. DOBUTAMINE [Suspect]
     Active Substance: DOBUTAMINE HYDROCHLORIDE
     Indication: CARDIAC STRESS TEST
     Dosage: ?          OTHER FREQUENCY:ONCE;?
     Route: 040
     Dates: start: 20200305, end: 20200305
  2. ISOSORBIDE DINITRATE 10 MG TABLET [Concomitant]
     Dates: start: 20200305, end: 20200306
  3. TACROLIMUS 1 MG CAPSULE [Concomitant]
     Dates: start: 20200305, end: 20200306
  4. EVEROLIMUS 1.5 MG TABLET [Concomitant]
     Dates: start: 20200305, end: 20200306
  5. ATORVASTATIN 80 MG TABLET [Concomitant]
     Active Substance: ATORVASTATIN CALCIUM
     Dates: start: 20200305, end: 20200305
  6. MAGNESIUM OXIDE 800 MG TABLET [Concomitant]
     Dates: start: 20200305, end: 20200306
  7. CARVEDILOL 12.5 MG TABLET [Concomitant]
     Active Substance: CARVEDILOL
     Dates: start: 20200305, end: 20200306
  8. CALCIUM CITRATE VITAMIN D3 315 MG 250 UNITS TABLET [Concomitant]
     Dates: start: 20200305, end: 20200306
  9. MIRTAZAPINE 15 MG TABLET [Concomitant]
     Active Substance: MIRTAZAPINE
     Dates: start: 20200305, end: 20200306

REACTIONS (8)
  - Acute myocardial infarction [None]
  - Cardiac procedure complication [None]
  - Chest pain [None]
  - Heart rate increased [None]
  - Ventricular extrasystoles [None]
  - Ventricular tachycardia [None]
  - Electrocardiogram ST segment abnormal [None]
  - Intentional product use issue [None]

NARRATIVE: CASE EVENT DATE: 20200305
